FAERS Safety Report 22053269 (Version 1)
Quarter: 2023Q1

REPORT INFORMATION
  Report Type: Spontaneous
  Country: BR (occurrence: BR)
  Receive Date: 20230302
  Receipt Date: 20230302
  Transmission Date: 20230417
  Serious: Yes (Other)
  Sender: FDA-Public Use
  Company Number: BR-MYLANLABS-2023M1022126

PATIENT
  Age: 85 Year
  Sex: Female

DRUGS (3)
  1. BORTEZOMIB [Suspect]
     Active Substance: BORTEZOMIB
     Indication: Plasma cell myeloma
     Dosage: UNK UNK, CYCLE
     Route: 065
     Dates: start: 20220424
  2. CYCLOPHOSPHAMIDE [Concomitant]
     Active Substance: CYCLOPHOSPHAMIDE
     Indication: Plasma cell myeloma
     Dosage: UNK UNK, CYCLE
     Route: 065
     Dates: start: 20220424
  3. DEXAMETHASONE [Concomitant]
     Active Substance: DEXAMETHASONE
     Indication: Plasma cell myeloma
     Dosage: UNK UNK, CYCLE
     Route: 065
     Dates: start: 20220424

REACTIONS (4)
  - Cardiotoxicity [Recovering/Resolving]
  - Oedema [Recovering/Resolving]
  - Dyspnoea exertional [Recovering/Resolving]
  - Cough [Recovering/Resolving]
